FAERS Safety Report 6083927-7 (Version None)
Quarter: 2009Q1

REPORT INFORMATION
  Report Type: 
  Country: None (occurrence: None)
  Receive Date: 20090219
  Receipt Date: 20090218
  Transmission Date: 20090719
  Serious: Yes (Other)
  Sender: FDA-Public Use
  Company Number: A0769369A

PATIENT
  Age: 49 Year
  Sex: Female

DRUGS (3)
  1. NICORETTE [Suspect]
     Indication: SMOKING CESSATION THERAPY
     Dosage: 2MG PER DAY
     Route: 002
  2. CAPTOPRIL [Concomitant]
     Indication: HYPERTENSION
  3. PROPRANOLOL [Concomitant]
     Indication: HYPERTENSION

REACTIONS (1)
  - HYPERTENSIVE CRISIS [None]
